FAERS Safety Report 5429295-2 (Version None)
Quarter: 2007Q3

REPORT INFORMATION
  Report Type: 
  Country: None (occurrence: None)
  Receive Date: 20070829
  Receipt Date: 20070828
  Transmission Date: 20080115
  Serious: Yes (Other)
  Sender: FDA-Public Use
  Company Number: US-PURDUE-USA_2007_0028093

PATIENT
  Sex: Female
  Weight: 77 kg

DRUGS (7)
  1. OXYCONTIN [Suspect]
     Indication: BACK PAIN
     Dosage: 10 MG, SEE TEXT
     Dates: start: 19970908, end: 20010710
  2. XANAX [Concomitant]
     Dosage: 1 MG, QID
  3. PAXIL [Concomitant]
     Dosage: 20 MG, DAILY
  4. SOMA [Concomitant]
     Dosage: 350 MG, QID
  5. AMBIEN [Concomitant]
     Dosage: 10 MG, HS
  6. ALBUTEROL [Concomitant]
     Dosage: 2 PUFF, Q4H PRN
  7. LASIX [Concomitant]
     Dosage: 40 MG, BID PRN

REACTIONS (13)
  - COMMUNICATION DISORDER [None]
  - DRUG DEPENDENCE [None]
  - DRUG TOLERANCE [None]
  - DYSURIA [None]
  - FAECAL INCONTINENCE [None]
  - GAIT DISTURBANCE [None]
  - HALLUCINATIONS, MIXED [None]
  - HYPERSOMNIA [None]
  - PAIN [None]
  - SEDATION [None]
  - SENSORY DISTURBANCE [None]
  - SOMNOLENCE [None]
  - URINARY INCONTINENCE [None]
